FAERS Safety Report 4700815-6 (Version None)
Quarter: 2005Q2

REPORT INFORMATION
  Report Type: 
  Country: None (occurrence: None)
  Receive Date: 20050624
  Receipt Date: 20041116
  Transmission Date: 20051028
  Serious: Yes (Death)
  Sender: FDA-Public Use
  Company Number: 386640

PATIENT
  Age: 56 Year
  Sex: Female

DRUGS (1)
  1. XELODA [Suspect]
     Indication: BREAST CANCER METASTATIC
     Dosage: 1500 MG 2 PER DAY ORAL
     Route: 048
     Dates: start: 20040715

REACTIONS (1)
  - BREAST CANCER METASTATIC [None]
